FAERS Safety Report 8816548 (Version 1)
Quarter: 2012Q4

REPORT INFORMATION
  Report Type: Spontaneous
  Country: US (occurrence: None)
  Receive Date: 20121001
  Receipt Date: 20121001
  Transmission Date: 20130627
  Serious: Yes (Hospitalization)
  Sender: FDA-Public Use
  Company Number: None

PATIENT
  Age: 59 Year
  Sex: Male
  Weight: 147.7 kg

DRUGS (1)
  1. GABAPENTIN [Suspect]
     Indication: DIABETES MELLITUS
     Route: 048
     Dates: start: 20120820, end: 20120918

REACTIONS (3)
  - Dizziness [None]
  - Confusional state [None]
  - Diabetes mellitus inadequate control [None]
